FAERS Safety Report 7732462-6 (Version None)
Quarter: 2011Q3

REPORT INFORMATION
  Report Type: 
  Country: None (occurrence: None)
  Receive Date: 20110906
  Receipt Date: 20110823
  Transmission Date: 20111222
  Serious: Yes (Hospitalization)
  Sender: FDA-Public Use
  Company Number: CA-ELI_LILLY_AND_COMPANY-CA201108006945

PATIENT
  Sex: Female

DRUGS (6)
  1. ZYPREXA [Suspect]
     Indication: BIPOLAR I DISORDER
     Dosage: 10 MG, EACH EVENING
  2. ZYPREXA [Suspect]
     Dosage: 20 MG, UNK
  3. ZOPICLONE [Concomitant]
  4. ATIVAN [Concomitant]
  5. ZYPREXA [Suspect]
     Dosage: 7.5 MG, UNK
  6. ZYPREXA [Suspect]
     Dosage: 15 MG, UNK

REACTIONS (13)
  - SHOCK [None]
  - CARDIOMEGALY [None]
  - BLOOD ALKALINE PHOSPHATASE INCREASED [None]
  - LOSS OF DREAMING [None]
  - HEPATIC STEATOSIS [None]
  - MUSCLE SPASMS [None]
  - GAMMA-GLUTAMYLTRANSFERASE INCREASED [None]
  - TYPE 2 DIABETES MELLITUS [None]
  - HYPERTENSION [None]
  - HYPERCHOLESTEROLAEMIA [None]
  - CHEST PAIN [None]
  - MICROALBUMINURIA [None]
  - ALANINE AMINOTRANSFERASE INCREASED [None]
